FAERS Safety Report 12170562 (Version 1)
Quarter: 2016Q1

REPORT INFORMATION
  Report Type: Report from Study
  Country: US (occurrence: US)
  Receive Date: 20160311
  Receipt Date: 20160311
  Transmission Date: 20160526
  Serious: Yes (Other)
  Sender: FDA-Public Use
  Company Number: US-AMGEN-USASL2016027454

PATIENT
  Age: 48 Year
  Sex: Female

DRUGS (1)
  1. ENBREL [Suspect]
     Active Substance: ETANERCEPT
     Indication: RHEUMATOID ARTHRITIS
     Dosage: UNK UNK, UNK
     Route: 065

REACTIONS (5)
  - Oophorectomy bilateral [Recovered/Resolved]
  - Incorrect product storage [Unknown]
  - Urticaria [Recovered/Resolved]
  - Cervicectomy [Recovered/Resolved]
  - Rash [Unknown]
